FAERS Safety Report 14327945 (Version 1)
Quarter: 2017Q4

REPORT INFORMATION
  Report Type: Report from Study
  Country: US (occurrence: US)
  Receive Date: 20171227
  Receipt Date: 20171227
  Transmission Date: 20180321
  Serious: Yes (Hospitalization)
  Sender: FDA-Public Use
  Company Number: US-BAYER-2017-175105

PATIENT
  Age: 63 Year
  Sex: Male

DRUGS (1)
  1. STIVARGA [Suspect]
     Active Substance: REGORAFENIB
     Indication: COLORECTAL CANCER
     Dosage: 160 MG, QD
     Route: 048
     Dates: start: 20170906, end: 2017

REACTIONS (12)
  - Laboratory test abnormal [None]
  - Diarrhoea [Not Recovered/Not Resolved]
  - Blood pressure decreased [None]
  - Heart rate irregular [None]
  - Fatigue [Recovering/Resolving]
  - Decreased appetite [Recovered/Resolved]
  - Abdominal pain [None]
  - Abdominal pain [Not Recovered/Not Resolved]
  - Dysphonia [Recovering/Resolving]
  - Dehydration [None]
  - Decreased appetite [None]
  - Tumour marker decreased [None]

NARRATIVE: CASE EVENT DATE: 2017
